FAERS Safety Report 10410400 (Version 1)
Quarter: 2014Q3

REPORT INFORMATION
  Report Type: Spontaneous
  Country: US (occurrence: US)
  Receive Date: 20140826
  Receipt Date: 20140826
  Transmission Date: 20150326
  Serious: Yes (Hospitalization)
  Sender: FDA-Public Use
  Company Number: US-GLAXOSMITHKLINE-A0804400A

PATIENT
  Sex: Male

DRUGS (1)
  1. AVANDIA [Suspect]
     Active Substance: ROSIGLITAZONE MALEATE
     Indication: DIABETES MELLITUS
     Dosage: 4MG PER DAY
     Route: 048
     Dates: start: 20060102, end: 200705

REACTIONS (8)
  - Ischaemic cardiomyopathy [Unknown]
  - Acute myocardial infarction [Unknown]
  - Ventricular tachycardia [Unknown]
  - Pulmonary oedema [Unknown]
  - Congestive cardiomyopathy [Unknown]
  - Cardiogenic shock [Unknown]
  - Cardiac failure congestive [Unknown]
  - Pleural effusion [Unknown]
